FAERS Safety Report 5607288-X (Version None)
Quarter: 2008Q1

REPORT INFORMATION
  Report Type: 
  Country: None (occurrence: None)
  Receive Date: 20080130
  Receipt Date: 20080121
  Transmission Date: 20080703
  Serious: Yes (Other)
  Sender: FDA-Public Use
  Company Number: US-JNJFOC-20070806278

PATIENT
  Sex: Female
  Weight: 77.11 kg

DRUGS (18)
  1. REMICADE [Suspect]
     Route: 042
  2. REMICADE [Suspect]
     Route: 042
  3. REMICADE [Suspect]
     Indication: CROHN'S DISEASE
     Route: 042
  4. PREDNISONE TAB [Concomitant]
     Route: 048
  5. PREDNISONE TAB [Concomitant]
     Route: 048
  6. PREDNISONE TAB [Concomitant]
     Route: 048
  7. PREDNISONE TAB [Concomitant]
     Route: 048
  8. PREDNISONE TAB [Concomitant]
     Route: 048
  9. PREDNISONE TAB [Concomitant]
     Route: 048
  10. PREDNISONE TAB [Concomitant]
     Route: 048
  11. VITAMIN B-12 [Concomitant]
     Route: 045
  12. CALCIUM AND VITAMIN D [Concomitant]
     Route: 048
  13. FOSAMAX [Concomitant]
     Route: 048
  14. ZITHROMAX [Concomitant]
     Indication: UPPER RESPIRATORY TRACT INFECTION
     Route: 048
  15. FLONASE [Concomitant]
     Route: 055
  16. NEXIUM [Concomitant]
     Route: 048
  17. PEPCID [Concomitant]
     Route: 048
  18. DRIXORAL [Concomitant]
     Route: 048

REACTIONS (1)
  - GRANULOMATOUS LIVER DISEASE [None]
